FAERS Safety Report 23585989 (Version 4)
Quarter: 2024Q3

REPORT INFORMATION
  Report Type: Report from Study
  Country: GB (occurrence: GB)
  Receive Date: 20240301
  Receipt Date: 20240713
  Transmission Date: 20241017
  Serious: Yes (Other)
  Sender: ABBVIE
  Company Number: GB-ABBVIE-5659057

PATIENT
  Age: 47 Year
  Sex: Male

DRUGS (1)
  1. SKYRIZI [Suspect]
     Active Substance: RISANKIZUMAB-RZAA
     Indication: Psoriasis
     Dosage: FORM STRENGTH: 150 MILLIGRAM
     Route: 058
     Dates: start: 20230214

REACTIONS (15)
  - Hip arthroplasty [Unknown]
  - Migraine [Unknown]
  - Hypoacusis [Unknown]
  - Gastrointestinal disorder [Unknown]
  - Fatigue [Unknown]
  - Mental disorder [Unknown]
  - Psoriasis [Recovered/Resolved]
  - Attention deficit hyperactivity disorder [Unknown]
  - Schizophrenia [Unknown]
  - Pain of skin [Recovered/Resolved]
  - Mobility decreased [Unknown]
  - Immunodeficiency [Unknown]
  - Nervousness [Unknown]
  - Hip fracture [Unknown]
  - Skin exfoliation [Unknown]

NARRATIVE: CASE EVENT DATE: 20231201
